FAERS Safety Report 10215693 (Version 3)
Quarter: 2014Q2

REPORT INFORMATION
  Report Type: Spontaneous
  Country: GB (occurrence: None)
  Receive Date: 20140602
  Receipt Date: 20140624
  Transmission Date: 20141212
  Serious: Yes (Disabling)
  Sender: FDA-Public Use
  Company Number: 2367799

PATIENT
  Age: 11 Year
  Sex: Male
  Weight: 35.9 kg

DRUGS (10)
  1. METHOTREXATE [Suspect]
     Indication: NON-HODGKIN^S LYMPHOMA
     Dosage: 8000 MG/M2 MILLIGRAM/SQ. METER (UNKNOWN) INTRAVENOUS (NOT OTHERWISE SPECIFIED)?
     Route: 042
     Dates: start: 20140305, end: 20140305
  2. METHOTREXATE [Suspect]
     Indication: PRODUCT USED FOR UNKNOWN INDICATION
     Dosage: 8000 MG/M2 MILLIGRAM/SQ. METER (UNKNOWN) INTRAVENOUS (NOT OTHERWISE SPECIFIED)?
     Route: 042
     Dates: start: 20140305, end: 20140305
  3. TOLVAPTAN [Suspect]
     Indication: INAPPROPRIATE ANTIDIURETIC HORMONE SECRETION
     Dosage: 5-10MG ONCE TO TWICE DAILY TITRATED TO URINE OUTPUT AND FLUID BALANCE NO MORE THAN 15MG DAILY  ORAL
     Dates: start: 20140227, end: 20140305
  4. CYCLOPHOSPHAMIDE [Concomitant]
  5. DOXORUBICIN [Concomitant]
  6. FOLINIC ACID [Concomitant]
  7. PREDNISOLONE [Concomitant]
  8. VINCRISTINE [Concomitant]
  9. HYDROCORTISONE [Concomitant]
  10. CYTARABINE [Concomitant]

REACTIONS (16)
  - Drug interaction [None]
  - Dermatitis [None]
  - Dactylitis [None]
  - Dry skin [None]
  - Skin fissures [None]
  - Skin exfoliation [None]
  - Pain of skin [None]
  - Oedema [None]
  - Erythema [None]
  - Skin discolouration [None]
  - Mucosal inflammation [None]
  - Toxicity to various agents [None]
  - Neutropenia [None]
  - Inappropriate antidiuretic hormone secretion [None]
  - Neutrophil count abnormal [None]
  - Bacterial infection [None]
